FAERS Safety Report 7588642-6 (Version None)
Quarter: 2011Q3

REPORT INFORMATION
  Report Type: 
  Country: None (occurrence: None)
  Receive Date: 20110705
  Receipt Date: 20110426
  Transmission Date: 20111222
  Serious: Yes (Hospitalization, Other)
  Sender: FDA-Public Use
  Company Number: US-BAYER-200934756NA

PATIENT
  Age: 39 Year
  Sex: Female
  Weight: 87.528 kg

DRUGS (21)
  1. FIORICET [Concomitant]
     Indication: HEADACHE
  2. METFORMIN HCL [Concomitant]
     Indication: POLYCYSTIC OVARIES
     Dosage: 1000 MG (DAILY DOSE), BID, UNKNOWN
     Route: 065
     Dates: start: 20070101, end: 20090101
  3. HYDROXYZINE [Concomitant]
     Indication: ANTIALLERGIC THERAPY
     Route: 065
     Dates: start: 20070101
  4. AMOXICILLIN [Concomitant]
     Indication: ANTIBIOTIC THERAPY
     Dosage: 500 MG (DAILY DOSE), QD, UNKNOWN
     Route: 065
     Dates: start: 20081222, end: 20090101
  5. NORCO [Concomitant]
     Route: 048
  6. SYNTHROID [Concomitant]
     Indication: HYPOTHYROIDISM
     Route: 065
     Dates: start: 20071001, end: 20090101
  7. PHENTERMINE [Concomitant]
     Indication: WEIGHT DECREASED
     Route: 065
     Dates: start: 20080101
  8. YAZ [Suspect]
     Indication: CONTRACEPTION
     Dosage: UNK
     Dates: start: 20080201, end: 20080401
  9. METFORMIN HCL [Concomitant]
     Dosage: 200 MG (DAILY DOSE), BID, UNKNOWN
     Route: 065
     Dates: start: 20070101, end: 20090101
  10. PRILOSEC [Concomitant]
  11. ZOLOFT [Concomitant]
  12. YASMIN [Suspect]
     Indication: CONTRACEPTION
     Dosage: 3 ONCE A DAY
     Route: 048
     Dates: start: 20050601, end: 20050801
  13. FIORICET [Concomitant]
     Indication: MIGRAINE
     Route: 065
     Dates: start: 20080101, end: 20100101
  14. FLEXERIL [Concomitant]
     Indication: BACK PAIN
     Route: 048
  15. YAZ [Suspect]
     Indication: MENSTRUATION IRREGULAR
  16. PEPCID [Concomitant]
     Route: 048
  17. VICODIN [Concomitant]
  18. PRENATAL VITAMINS [Concomitant]
     Indication: MEDICAL DIET
     Route: 065
     Dates: start: 20080101
  19. ATENOLOL [Concomitant]
     Indication: BLOOD PRESSURE MANAGEMENT
     Dosage: 50 MG (DAILY DOSE), QD, UNKNOWN
     Route: 065
     Dates: start: 20070101
  20. PROZAC [Concomitant]
     Indication: DEPRESSION
     Route: 065
     Dates: start: 20080101, end: 20100101
  21. SERTRALINE HYDROCHLORIDE [Concomitant]
     Dosage: 50 MG, UNK
     Route: 048

REACTIONS (10)
  - CHOLECYSTITIS CHRONIC [None]
  - NAUSEA [None]
  - CHOLELITHIASIS [None]
  - ABDOMINAL PAIN UPPER [None]
  - GALLBLADDER CHOLESTEROLOSIS [None]
  - PAIN [None]
  - ANXIETY [None]
  - MUCOSAL EROSION [None]
  - PORTAL VEIN THROMBOSIS [None]
  - VOMITING [None]
